FAERS Safety Report 6139771-5 (Version None)
Quarter: 2009Q2

REPORT INFORMATION
  Report Type: 
  Country: None (occurrence: None)
  Receive Date: 20090401
  Receipt Date: 20090324
  Transmission Date: 20091009
  Serious: Yes (Hospitalization)
  Sender: FDA-Public Use
  Company Number: A0771839A

PATIENT
  Age: 88 Year
  Sex: Female

DRUGS (13)
  1. ZOVIRAX [Suspect]
     Indication: DRUG USE FOR UNKNOWN INDICATION
     Route: 048
  2. ATIVAN [Concomitant]
  3. TETRACYCLINE [Concomitant]
  4. PROTONIX [Concomitant]
  5. NEUPOGEN [Concomitant]
  6. LOPRESSOR [Concomitant]
  7. DIFLUCAN [Concomitant]
  8. TYLENOL [Concomitant]
  9. ZOFRAN [Concomitant]
  10. ASPIRIN [Concomitant]
  11. BENADRYL [Concomitant]
  12. NYSTATIN [Concomitant]
  13. UNKNOWN MEDICATION [Concomitant]

REACTIONS (5)
  - DYSPHAGIA [None]
  - MYELOPROLIFERATIVE DISORDER [None]
  - STOMATITIS [None]
  - THROAT IRRITATION [None]
  - WHITE BLOOD CELL COUNT ABNORMAL [None]
